FAERS Safety Report 4287611-1 (Version None)
Quarter: 2004Q1

REPORT INFORMATION
  Report Type: 
  Country: None (occurrence: None)
  Receive Date: 20040209
  Receipt Date: 20030807
  Transmission Date: 20041129
  Serious: No
  Sender: FDA-Public Use
  Company Number: US-GLAXOSMITHKLINE-A0419978A

PATIENT
  Age: 47 Year
  Sex: Female

DRUGS (3)
  1. PAXIL CR [Suspect]
     Indication: DEPRESSION
     Route: 048
     Dates: start: 20030714
  2. ZOLOFT [Suspect]
     Dosage: 150MG PER DAY
     Dates: end: 20030714
  3. KLONOPIN [Concomitant]

REACTIONS (2)
  - DIZZINESS [None]
  - PARAESTHESIA [None]
